FAERS Safety Report 10249308 (Version 1)
Quarter: 2014Q2

REPORT INFORMATION
  Report Type: Spontaneous
  Country: JP (occurrence: JP)
  Receive Date: 20140620
  Receipt Date: 20140620
  Transmission Date: 20141212
  Serious: Yes (Other)
  Sender: FDA-Public Use
  Company Number: JP-ASTRAZENECA-2014SE41018

PATIENT
  Age: 64 Year
  Sex: Male

DRUGS (4)
  1. ANAPEINE [Suspect]
     Indication: INFILTRATION ANAESTHESIA
     Route: 053
  2. FENTANYL [Concomitant]
     Indication: GENERAL ANAESTHESIA
     Dosage: DOSE UNKNOWN
     Route: 042
  3. PROPOFOL [Concomitant]
     Indication: GENERAL ANAESTHESIA
     Dosage: DOSE UNKNOWN
     Route: 042
  4. REMIFENTANIL HYDROCHLORIDE [Concomitant]
     Indication: GENERAL ANAESTHESIA
     Dosage: DOSE UNKNOWN
     Route: 042

REACTIONS (4)
  - Delayed recovery from anaesthesia [Recovered/Resolved]
  - Toxicity to various agents [Recovered/Resolved]
  - Respiratory depression [Recovered/Resolved]
  - Ventricular tachycardia [Recovered/Resolved]
